FAERS Safety Report 12635940 (Version 1)
Quarter: 2016Q3

REPORT INFORMATION
  Report Type: Spontaneous
  Country: US (occurrence: US)
  Receive Date: 20160809
  Receipt Date: 20160809
  Transmission Date: 20161109
  Serious: No
  Sender: FDA-Public Use
  Company Number: US-PFIZER INC-2016376433

PATIENT
  Age: 76 Year
  Sex: Female

DRUGS (5)
  1. LORTAB [Suspect]
     Active Substance: ACETAMINOPHEN\HYDROCODONE BITARTRATE
     Dosage: UNK
  2. BACTRIM [Suspect]
     Active Substance: SULFAMETHOXAZOLE\TRIMETHOPRIM
     Dosage: UNK
  3. VICODIN [Suspect]
     Active Substance: ACETAMINOPHEN\HYDROCODONE BITARTRATE
     Dosage: UNK
  4. AZULFIDINE [Suspect]
     Active Substance: SULFASALAZINE
     Dosage: UNK
  5. NU-IRON [Suspect]
     Active Substance: FERRIC POLYSACCHARIDE COMPLEX
     Dosage: UNK

REACTIONS (2)
  - Myalgia [Unknown]
  - Arthralgia [Unknown]
